FAERS Safety Report 18973498 (Version 2)
Quarter: 2021Q1

REPORT INFORMATION
  Report Type: Spontaneous
  Country: US (occurrence: US)
  Receive Date: 20210305
  Receipt Date: 20210309
  Transmission Date: 20210420
  Serious: No
  Sender: FDA-Public Use
  Company Number: US-BIOVITRUM-2021US2198

PATIENT
  Sex: Male

DRUGS (4)
  1. SYNAGIS [Suspect]
     Active Substance: PALIVIZUMAB
     Indication: PREMATURE BABY
     Dosage: 100MG/1ML VL LIQUID
     Route: 030
     Dates: start: 202011
  2. POLY?VI?FLOR [Concomitant]
  3. CLINDAMYCIN. [Concomitant]
     Active Substance: CLINDAMYCIN
  4. SYNAGIS [Suspect]
     Active Substance: PALIVIZUMAB
     Indication: ANTIVIRAL PROPHYLAXIS

REACTIONS (6)
  - Cough [Unknown]
  - Ear infection [Unknown]
  - Product dose omission issue [Unknown]
  - Sneezing [Unknown]
  - Nasal congestion [Unknown]
  - Gastrooesophageal reflux disease [Unknown]
